FAERS Safety Report 23291134 (Version 2)
Quarter: 2024Q1

REPORT INFORMATION
  Report Type: Report from Study
  Country: CA (occurrence: None)
  Receive Date: 20231213
  Receipt Date: 20240105
  Transmission Date: 20240410
  Serious: Yes (Death, Other)
  Sender: FDA-Public Use
  Company Number: 2023A282249

PATIENT
  Age: 29264 Day
  Sex: Female

DRUGS (1)
  1. IMFINZI [Suspect]
     Active Substance: DURVALUMAB
     Indication: Biliary neoplasm
     Route: 042
     Dates: start: 20230419

REACTIONS (1)
  - Death [Fatal]

NARRATIVE: CASE EVENT DATE: 20231123
